FAERS Safety Report 25339644 (Version 2)
Quarter: 2025Q2

REPORT INFORMATION
  Report Type: Spontaneous
  Country: JP (occurrence: JP)
  Receive Date: 20250521
  Receipt Date: 20250623
  Transmission Date: 20250717
  Serious: Yes (Other)
  Sender: NOVARTIS
  Company Number: JP-002147023-NVSJ2025JP005263

PATIENT
  Age: 81 Year
  Sex: Male
  Weight: 69.8 kg

DRUGS (6)
  1. ENTRESTO [Suspect]
     Active Substance: SACUBITRIL\VALSARTAN
     Indication: Hypertension
     Dosage: 400 MG, QD
     Route: 048
  2. ENTRESTO [Suspect]
     Active Substance: SACUBITRIL\VALSARTAN
     Dosage: 200 MG, BID
     Route: 048
  3. NIFEDIPINE [Concomitant]
     Active Substance: NIFEDIPINE
     Indication: Product used for unknown indication
     Dosage: 40 MG, QD AFTER BREAKFAST
     Route: 048
  4. DOXAZOSIN [Concomitant]
     Active Substance: DOXAZOSIN MESYLATE
     Indication: Product used for unknown indication
     Dosage: 0.5 MG, QD AFTER BREAKFAST
     Route: 048
  5. ESAXERENONE [Concomitant]
     Active Substance: ESAXERENONE
     Indication: Product used for unknown indication
     Dosage: 2.5 MG, QD AFTER BREAKFAST
     Route: 048
  6. PROBUCOL [Concomitant]
     Active Substance: PROBUCOL
     Indication: Dyslipidaemia
     Route: 048

REACTIONS (9)
  - Blood pressure fluctuation [Recovering/Resolving]
  - Dizziness [Recovering/Resolving]
  - Aortic arteriosclerosis [Unknown]
  - Cardiac failure [Unknown]
  - Oedema peripheral [Recovering/Resolving]
  - Age-related macular degeneration [Unknown]
  - Renal impairment [Unknown]
  - Atrioventricular block first degree [Unknown]
  - Blood potassium increased [Unknown]
